FAERS Safety Report 15264983 (Version 1)
Quarter: 2018Q3

REPORT INFORMATION
  Report Type: Report from Study
  Country: DE (occurrence: DE)
  Receive Date: 20180810
  Receipt Date: 20180810
  Transmission Date: 20181010
  Serious: Yes (Hospitalization)
  Sender: FDA-Public Use
  Company Number: DE-SA-2017SA241403

PATIENT
  Age: 29 Year
  Sex: Male
  Weight: 71 kg

DRUGS (6)
  1. ALEMTUZUMAB [Suspect]
     Active Substance: ALEMTUZUMAB
     Indication: MULTIPLE SCLEROSIS
     Dosage: 12 MG,UNK
     Route: 041
     Dates: start: 20170710, end: 20170714
  2. ESCITALOPRAM [Concomitant]
     Active Substance: ESCITALOPRAM OXALATE
     Dosage: 5 MG,1?0?0
  3. OLANZAPIN BETA [Concomitant]
     Dosage: 5 MG,0?0?0?1
  4. TIAPRID [Concomitant]
     Active Substance: TIAPRIDE HYDROCHLORIDE
     Dosage: 100 MG,2?2?2?
  5. DACLIZUMAB [Concomitant]
     Active Substance: DACLIZUMAB
     Dosage: UNK
     Dates: start: 201612, end: 201706
  6. LORAZEPAM DURA [Concomitant]
     Dosage: 1 MG

REACTIONS (10)
  - Cerebral ischaemia [Recovered/Resolved]
  - Cerebrovascular accident [Recovered/Resolved]
  - Lichen planus [Not Recovered/Not Resolved]
  - Influenza like illness [Recovered/Resolved]
  - Vertigo [Recovered/Resolved]
  - Dysstasia [Recovered/Resolved]
  - Haemorrhoids [Recovered/Resolved]
  - Anxiety disorder [Not Recovered/Not Resolved]
  - Erectile dysfunction [Unknown]
  - Fatigue [Recovering/Resolving]

NARRATIVE: CASE EVENT DATE: 20170731
